FAERS Safety Report 23427346 (Version 1)
Quarter: 2024Q1

REPORT INFORMATION
  Report Type: Spontaneous
  Country: BR (occurrence: BR)
  Receive Date: 20240122
  Receipt Date: 20240122
  Transmission Date: 20240410
  Serious: Yes (Death, Other)
  Sender: FDA-Public Use
  Company Number: BR-SUN PHARMACEUTICAL INDUSTRIES LTD-2024R1-427507

PATIENT
  Age: 76 Year
  Sex: Male

DRUGS (2)
  1. QUETIAPINE [Suspect]
     Active Substance: QUETIAPINE
     Indication: Acute kidney injury
     Dosage: UNK
     Route: 065
  2. HALOPERIDOL [Suspect]
     Active Substance: HALOPERIDOL
     Indication: Acute kidney injury
     Dosage: UNK
     Route: 065

REACTIONS (2)
  - Condition aggravated [Fatal]
  - Cardio-respiratory arrest [Fatal]
